FAERS Safety Report 7531731-2 (Version None)
Quarter: 2011Q2

REPORT INFORMATION
  Report Type: 
  Country: None (occurrence: None)
  Receive Date: 20110608
  Receipt Date: 20110531
  Transmission Date: 20111010
  Serious: Yes (Other)
  Sender: FDA-Public Use
  Company Number: US-ASTELLAS-2011US002445

PATIENT
  Sex: Female
  Weight: 22 kg

DRUGS (14)
  1. EPOGEN [Suspect]
     Dosage: 3000 IU, 3XWEEKLY
     Route: 058
     Dates: start: 20110201, end: 20110201
  2. PROCRIT [Suspect]
     Dosage: 5000 IU, 3XWEEKLY
     Route: 058
     Dates: start: 20110201, end: 20110201
  3. VALCYTE [Suspect]
     Indication: CYTOMEGALOVIRUS INFECTION
     Dosage: UNK
     Route: 065
     Dates: start: 20101018, end: 20110222
  4. SYMBICORT [Concomitant]
     Indication: ASTHMA
     Dosage: UNK
     Route: 065
  5. ALBUTEROL SULFATE AUTOHALER [Concomitant]
     Indication: ASTHMA
     Dosage: UNK
     Route: 065
  6. FERROUS SULFATE TAB [Concomitant]
     Indication: PRODUCT USED FOR UNKNOWN INDICATION
     Dosage: UNK
     Route: 065
  7. ATENOLOL [Concomitant]
     Indication: BLOOD PRESSURE
     Dosage: UNK
     Route: 065
  8. PROCRIT [Suspect]
     Indication: NEPHROGENIC ANAEMIA
     Dosage: 7000 UG, 3XWEEKLY
     Route: 058
     Dates: start: 20080101, end: 20110315
  9. PROGRAF [Suspect]
     Indication: RENAL TRANSPLANT
     Dosage: UNK
     Route: 065
     Dates: start: 20040225, end: 20071120
  10. CALCIUM ACETATE [Concomitant]
     Indication: BLOOD POTASSIUM
     Dosage: UNK
     Route: 065
  11. PULMOZYME [Concomitant]
     Indication: ASTHMA
     Dosage: UNK
     Route: 065
  12. EPOGEN [Suspect]
     Indication: NEPHROGENIC ANAEMIA
     Dosage: 10000 IU, 3XWEEKLY
     Route: 058
     Dates: start: 20100101, end: 20110301
  13. CELLCEPT [Suspect]
     Indication: RENAL TRANSPLANT
     Dosage: UNK
     Route: 065
     Dates: start: 20040225
  14. PERIACTIN [Concomitant]
     Indication: ANTIALLERGIC THERAPY
     Dosage: UNK
     Route: 065

REACTIONS (4)
  - CYTOMEGALOVIRUS INFECTION [None]
  - HYPERPARATHYROIDISM [None]
  - ANTI-ERYTHROPOIETIN ANTIBODY NEGATIVE [None]
  - APLASIA PURE RED CELL [None]
